FAERS Safety Report 7320168-7 (Version None)
Quarter: 2011Q1

REPORT INFORMATION
  Report Type: 
  Country: None (occurrence: None)
  Receive Date: 20110228
  Receipt Date: 20110214
  Transmission Date: 20110831
  Serious: Yes (Hospitalization)
  Sender: FDA-Public Use
  Company Number: PHHY2010TW39943

PATIENT
  Sex: Female

DRUGS (2)
  1. GLEEVEC [Suspect]
     Indication: GASTROINTESTINAL STROMAL TUMOUR
     Dosage: 400 MG, UNK
     Route: 048
     Dates: start: 20090601
  2. GLEEVEC [Suspect]
     Dosage: 300 MG, UNK
     Route: 048

REACTIONS (5)
  - ERYTHEMA [None]
  - SPONDYLOLISTHESIS [None]
  - OEDEMA PERIPHERAL [None]
  - PRURITUS [None]
  - PLATELET COUNT DECREASED [None]
